FAERS Safety Report 9665774 (Version 1)
Quarter: 2013Q4

REPORT INFORMATION
  Report Type: Spontaneous
  Country: US (occurrence: None)
  Receive Date: 20131031
  Receipt Date: 20131031
  Transmission Date: 20140711
  Serious: Yes (Disabling)
  Sender: FDA-Public Use
  Company Number: None

PATIENT
  Age: 11 Year
  Sex: Female
  Weight: 27.67 kg

DRUGS (1)
  1. ALBUTEROL SULFATE 3ML NEPHRON PHARMECEUTICALS [Suspect]
     Indication: CYSTIC FIBROSIS
     Dosage: 1 VIAL FOUR TIMES DAILY INHALATION
     Route: 055

REACTIONS (6)
  - Lung infection [None]
  - Pulmonary function test decreased [None]
  - Decreased appetite [None]
  - Nausea [None]
  - Weight decreased [None]
  - Joint swelling [None]
